FAERS Safety Report 22150160 (Version 33)
Quarter: 2025Q4

REPORT INFORMATION
  Report Type: Report from Study
  Country: CA (occurrence: CA)
  Receive Date: 20230329
  Receipt Date: 20251215
  Transmission Date: 20260118
  Serious: Yes (Hospitalization, Other)
  Sender: TAKEDA
  Company Number: CA-TAKEDA-2023TUS024786

PATIENT
  Age: 3 Year
  Sex: Male
  Weight: 14 kg

DRUGS (36)
  1. TEDUGLUTIDE [Suspect]
     Active Substance: TEDUGLUTIDE
     Indication: Short-bowel syndrome
     Dosage: 0.65 MILLIGRAM, QD
     Dates: start: 20230228
  2. TEDUGLUTIDE [Suspect]
     Active Substance: TEDUGLUTIDE
     Dosage: 0.65 MILLIGRAM, QD
  3. TEDUGLUTIDE [Suspect]
     Active Substance: TEDUGLUTIDE
     Dosage: 0.65 MILLIGRAM, QD
  4. TEDUGLUTIDE [Suspect]
     Active Substance: TEDUGLUTIDE
     Dosage: UNK UNK, QD
  5. TEDUGLUTIDE [Suspect]
     Active Substance: TEDUGLUTIDE
     Dosage: 0.75 MILLIGRAM, QD
  6. TEDUGLUTIDE [Suspect]
     Active Substance: TEDUGLUTIDE
     Dosage: 0.65 MILLIGRAM, QD
     Dates: start: 20231123
  7. TEDUGLUTIDE [Suspect]
     Active Substance: TEDUGLUTIDE
     Dosage: 0.075 MILLILITER
  8. TEDUGLUTIDE [Suspect]
     Active Substance: TEDUGLUTIDE
     Dosage: 0.75 MILLIGRAM, QD
  9. TEDUGLUTIDE [Suspect]
     Active Substance: TEDUGLUTIDE
     Dosage: 0.75 MILLIGRAM, QD
  10. TEDUGLUTIDE [Suspect]
     Active Substance: TEDUGLUTIDE
     Dosage: 0.78 MILLIGRAM, QD
  11. TEDUGLUTIDE [Suspect]
     Active Substance: TEDUGLUTIDE
     Dosage: 0.05 MILLIGRAM/KILOGRAM, QD
  12. TEDUGLUTIDE [Suspect]
     Active Substance: TEDUGLUTIDE
     Dosage: 0.78 MILLIGRAM, QD
  13. TEDUGLUTIDE [Suspect]
     Active Substance: TEDUGLUTIDE
     Dosage: 0.78 MILLIGRAM, QD
  14. TEDUGLUTIDE [Suspect]
     Active Substance: TEDUGLUTIDE
     Dosage: 0.78 MILLIGRAM, QD
  15. TEDUGLUTIDE [Suspect]
     Active Substance: TEDUGLUTIDE
     Dosage: 0.85 MILLIGRAM, QD
  16. MAGNESIUM [Suspect]
     Active Substance: MAGNESIUM
     Indication: Product used for unknown indication
     Dosage: UNK
  17. TACROLIMUS [Concomitant]
     Active Substance: TACROLIMUS
     Indication: Liver transplant
     Dosage: 0.7 MILLIGRAM, BID
     Dates: start: 2020
  18. TACROLIMUS [Concomitant]
     Active Substance: TACROLIMUS
     Dosage: 0.9 MILLIGRAM
  19. TACROLIMUS [Concomitant]
     Active Substance: TACROLIMUS
     Dosage: 0.7 MILLIGRAM, BID
     Dates: start: 2020
  20. VITAMIN D [Concomitant]
     Active Substance: VITAMIN D NOS
     Dosage: 3000 INTERNATIONAL UNIT, QD
     Dates: start: 2022
  21. CALCIUM [Concomitant]
     Active Substance: CALCIUM
     Indication: Bone disorder
     Dosage: 500 MILLIGRAM, QD
  22. LOPERAMIDE [Concomitant]
     Active Substance: LOPERAMIDE
     Indication: Diarrhoea
     Dosage: 2 MILLIGRAM, QD
     Dates: start: 20230304
  23. LOPERAMIDE [Concomitant]
     Active Substance: LOPERAMIDE
     Dosage: 2 MILLIGRAM, BID
     Dates: start: 202303
  24. LOPERAMIDE [Concomitant]
     Active Substance: LOPERAMIDE
     Dosage: 1 DOSAGE FORM, BID
  25. LOPERAMIDE [Concomitant]
     Active Substance: LOPERAMIDE
     Dosage: 2 MILLIGRAM
  26. TPN [Concomitant]
     Active Substance: AMINO ACIDS\DEXTROSE\ELECTROLYTES NOS\SOYBEAN OIL
     Dosage: 850 MILLILITER, QD
     Dates: start: 20220928
  27. TPN [Concomitant]
     Active Substance: AMINO ACIDS\DEXTROSE\ELECTROLYTES NOS\SOYBEAN OIL
     Dosage: 850 MILLILITER, QD
     Dates: start: 20230419
  28. TPN [Concomitant]
     Active Substance: AMINO ACIDS\DEXTROSE\ELECTROLYTES NOS\SOYBEAN OIL
     Dosage: 850 MILLILITER, Q72H
  29. TPN [Concomitant]
     Active Substance: AMINO ACIDS\DEXTROSE\ELECTROLYTES NOS\SOYBEAN OIL
     Dosage: 850 MILLILITER
  30. TPN [Concomitant]
     Active Substance: AMINO ACIDS\DEXTROSE\ELECTROLYTES NOS\SOYBEAN OIL
     Dosage: 850 MILLILITER
  31. TPN [Concomitant]
     Active Substance: AMINO ACIDS\DEXTROSE\ELECTROLYTES NOS\SOYBEAN OIL
     Dosage: 850 MILLILITER
  32. TPN [Concomitant]
     Active Substance: AMINO ACIDS\DEXTROSE\ELECTROLYTES NOS\SOYBEAN OIL
     Dosage: 850 MILLILITER
  33. TPN [Concomitant]
     Active Substance: AMINO ACIDS\DEXTROSE\ELECTROLYTES NOS\SOYBEAN OIL
     Dosage: 850 MILLILITER
  34. UNSPECIFIED INGREDIENT [Concomitant]
     Active Substance: UNSPECIFIED INGREDIENT
     Dosage: 15 MILLIMOLE
  35. IRON [Concomitant]
     Active Substance: IRON
     Dosage: 50 MILLIGRAM, TID
  36. URSODIOL [Concomitant]
     Active Substance: URSODIOL
     Dosage: 100 MILLIGRAM, BID

REACTIONS (44)
  - Haematochezia [Recovered/Resolved]
  - Anal injury [Unknown]
  - Infection [Unknown]
  - Diarrhoea haemorrhagic [Recovered/Resolved]
  - Constipation [Recovered/Resolved]
  - Muscle strain [Unknown]
  - Diarrhoea [Recovering/Resolving]
  - Dyschezia [Unknown]
  - Abnormal faeces [Unknown]
  - Blood pressure increased [Unknown]
  - Respiratory rate decreased [Unknown]
  - COVID-19 [Recovered/Resolved]
  - Urine output increased [Unknown]
  - Skin turgor decreased [Unknown]
  - Rhinorrhoea [Unknown]
  - Eating disorder [Recovering/Resolving]
  - Faeces discoloured [Recovered/Resolved]
  - Skin discolouration [Unknown]
  - Skin warm [Unknown]
  - Middle insomnia [Unknown]
  - Abdominal discomfort [Recovered/Resolved]
  - Blood phosphorus decreased [Unknown]
  - Weight increased [Unknown]
  - Faecal volume increased [Unknown]
  - Parainfluenzae virus infection [Not Recovered/Not Resolved]
  - Weight decreased [Not Recovered/Not Resolved]
  - Gastrointestinal inflammation [Unknown]
  - Frequent bowel movements [Unknown]
  - Pollakiuria [Unknown]
  - Product administration error [Unknown]
  - Hand-foot-and-mouth disease [Unknown]
  - Weight fluctuation [Unknown]
  - Product dose omission issue [Not Recovered/Not Resolved]
  - Urine output fluctuation [Unknown]
  - Injection site discolouration [Unknown]
  - Influenza [Unknown]
  - Flatulence [Recovered/Resolved]
  - Cough [Unknown]
  - Abdominal pain upper [Unknown]
  - Nasopharyngitis [Not Recovered/Not Resolved]
  - Abdominal pain [Recovered/Resolved]
  - Viral infection [Recovered/Resolved]
  - Nausea [Recovered/Resolved]
  - Fungal infection [Unknown]

NARRATIVE: CASE EVENT DATE: 20230330
